FAERS Safety Report 4724039-1 (Version None)
Quarter: 2005Q3

REPORT INFORMATION
  Report Type: 
  Country: None (occurrence: None)
  Receive Date: 20050722
  Receipt Date: 20050719
  Transmission Date: 20060218
  Serious: Yes (Hospitalization)
  Sender: FDA-Public Use
  Company Number: 200510403BNE

PATIENT
  Age: 76 Year
  Sex: Female

DRUGS (19)
  1. SORAFENIB [Suspect]
     Indication: METASTATIC MALIGNANT MELANOMA
     Dosage: 400 MG, BID, ORAL
     Route: 048
     Dates: start: 20050506, end: 20050603
  2. DACARBAZINE [Suspect]
     Indication: METASTATIC MALIGNANT MELANOMA
     Dosage: 1800 MG, TOTAL DAILY, INTRAVENOUS
     Route: 042
     Dates: start: 20050527
  3. DIGOXIN [Concomitant]
  4. ASPIRIN [Concomitant]
  5. METOCLOPRAMIDE [Concomitant]
  6. HUMALOG [Concomitant]
  7. LANTUS [Concomitant]
  8. OMEPRAZOLE [Concomitant]
  9. ACETAMINOPHEN [Concomitant]
  10. BLOOD TRANSFUSION [Concomitant]
  11. BENDROFLUAZIDE [Concomitant]
  12. NITROFURANTOIN [Concomitant]
  13. CEPOREX [Concomitant]
  14. CO-DYDRAMOL [Concomitant]
  15. DEXAMETHASONE [Concomitant]
  16. CIPROFLOXACIN [Concomitant]
  17. CIPROFLOXACIN [Concomitant]
  18. PLATELETS [Concomitant]
  19. BLOOD TRANSFUSION [Concomitant]

REACTIONS (7)
  - ARRHYTHMIA [None]
  - ATRIAL FIBRILLATION [None]
  - ATRIAL TACHYCARDIA [None]
  - PYREXIA [None]
  - TORSADE DE POINTES [None]
  - URINARY TRACT INFECTION [None]
  - VENTRICULAR TACHYCARDIA [None]
